FAERS Safety Report 5331423-4 (Version None)
Quarter: 2007Q2

REPORT INFORMATION
  Report Type: 
  Country: None (occurrence: None)
  Receive Date: 20070516
  Receipt Date: 20070507
  Transmission Date: 20071010
  Serious: Yes (Death)
  Sender: FDA-Public Use
  Company Number: 2007AP000494

PATIENT
  Age: 62 Year
  Sex: Male

DRUGS (5)
  1. CYCLOSPORINE [Suspect]
     Indication: ALLOGENIC BONE MARROW TRANSPLANTATION THERAPY
     Dosage: 3 MG/KG; QD
  2. CYCLOSPORINE [Suspect]
     Indication: PROPHYLAXIS AGAINST GRAFT VERSUS HOST DISEASE
     Dosage: 3 MG/KG; QD
  3. FLUDARABINE PHOSPHATE [Suspect]
     Dosage: 125 MG/M2
  4. CYCLOPHOSPHAMIDE [Concomitant]
  5. PREDNISONE TAB [Concomitant]

REACTIONS (4)
  - ACUTE MYELOID LEUKAEMIA [None]
  - CHRONIC GRAFT VERSUS HOST DISEASE [None]
  - MALIGNANT NEOPLASM PROGRESSION [None]
  - SQUAMOUS CELL CARCINOMA OF SKIN [None]
